FAERS Safety Report 19615329 (Version 2)
Quarter: 2022Q2

REPORT INFORMATION
  Report Type: Spontaneous
  Country: US (occurrence: None)
  Receive Date: 20210727
  Receipt Date: 20220418
  Transmission Date: 20220721
  Serious: Yes (Other)
  Sender: FDA-Public Use
  Company Number: 2021A633326

PATIENT
  Age: 49 Year
  Sex: Male
  Weight: 74.8 kg

DRUGS (41)
  1. NEXIUM [Suspect]
     Active Substance: ESOMEPRAZOLE MAGNESIUM
     Indication: Gastrooesophageal reflux disease
     Route: 048
     Dates: start: 2009, end: 2019
  2. OMEPRAZOLE [Suspect]
     Active Substance: OMEPRAZOLE
     Indication: Gastrooesophageal reflux disease
     Dosage: GENERIC
     Route: 065
  3. OMEPRAZOLE [Suspect]
     Active Substance: OMEPRAZOLE
     Indication: Gastrooesophageal reflux disease
     Route: 048
     Dates: start: 20111107
  4. PROTONIX [Suspect]
     Active Substance: PANTOPRAZOLE SODIUM
     Indication: Gastrooesophageal reflux disease
     Route: 065
     Dates: start: 2008, end: 2019
  5. PROTONIX [Suspect]
     Active Substance: PANTOPRAZOLE SODIUM
     Indication: Gastrooesophageal reflux disease
     Route: 065
     Dates: start: 2020
  6. TACROLIMUS [Concomitant]
     Active Substance: TACROLIMUS
     Indication: Immunosuppressant drug level
     Dates: start: 20191114
  7. BACTRIM [Concomitant]
     Active Substance: SULFAMETHOXAZOLE\TRIMETHOPRIM
     Indication: Infection
     Dates: start: 201911
  8. TRAMADOL [Concomitant]
     Active Substance: TRAMADOL
     Indication: Infection
     Dates: start: 201911, end: 2020
  9. ATORVASTATIN [Concomitant]
     Active Substance: ATORVASTATIN
     Indication: Hyperlipidaemia
  10. ACETAMINOPHEN [Concomitant]
     Active Substance: ACETAMINOPHEN
     Indication: Pain
  11. ACETAMINOPHEN [Concomitant]
     Active Substance: ACETAMINOPHEN
     Indication: Pain
  12. IBUPROFEN [Concomitant]
     Active Substance: IBUPROFEN
     Indication: Pain
  13. IBUPROFEN [Concomitant]
     Active Substance: IBUPROFEN
     Indication: Pain
  14. IRON [Concomitant]
     Active Substance: IRON
     Indication: Iron deficiency
  15. FAMOTIDINE [Concomitant]
     Active Substance: FAMOTIDINE
     Dates: start: 201911
  16. PEPTO-BISMOL [Concomitant]
     Active Substance: BISMUTH SUBSALICYLATE
     Dates: start: 201911
  17. TUMS [Concomitant]
     Active Substance: CALCIUM CARBONATE
     Dates: start: 201911
  18. GLYCYRRHIZIC ACID/SULFAMETHOXAZOLE/AMINOCAPROIC ACID/CHLORPHENAMINE [Concomitant]
  19. MORPHINE [Concomitant]
     Active Substance: MORPHINE
  20. BISACODYL [Concomitant]
     Active Substance: BISACODYL
  21. NYSTATIN [Concomitant]
     Active Substance: NYSTATIN
  22. DOCUSATE [Concomitant]
     Active Substance: DOCUSATE
  23. ONDANSETRON [Concomitant]
     Active Substance: ONDANSETRON
  24. SODIUM CHLORIDE [Concomitant]
     Active Substance: SODIUM CHLORIDE
  25. VALGANCICLOVIR [Concomitant]
     Active Substance: VALGANCICLOVIR
  26. MANNITOL [Concomitant]
     Active Substance: MANNITOL
  27. CIPROFLOXACIN [Concomitant]
     Active Substance: CIPROFLOXACIN
  28. METHYLPREDNISOLONE [Concomitant]
     Active Substance: METHYLPREDNISOLONE
  29. DIPHENHYDRAMINE [Concomitant]
     Active Substance: DIPHENHYDRAMINE
  30. PENTOXIFYLLINE [Concomitant]
     Active Substance: PENTOXIFYLLINE
  31. FLUNISOLIDE [Concomitant]
     Active Substance: FLUNISOLIDE
  32. SIMVASTATIN [Concomitant]
     Active Substance: SIMVASTATIN
  33. LACTULOSE [Concomitant]
     Active Substance: LACTULOSE
  34. CITRIC ACID [Concomitant]
     Active Substance: CITRIC ACID MONOHYDRATE
  35. HYDRALAZINE [Concomitant]
     Active Substance: HYDRALAZINE HYDROCHLORIDE
  36. SILDENAFIL [Concomitant]
     Active Substance: SILDENAFIL
  37. ZOLPIDEM TARTRATE [Concomitant]
     Active Substance: ZOLPIDEM TARTRATE
  38. TRIAMCINOLONE ACETONIDE [Concomitant]
     Active Substance: TRIAMCINOLONE ACETONIDE
  39. MUPIROCIN [Concomitant]
     Active Substance: MUPIROCIN
  40. GUAIFENESIN [Concomitant]
     Active Substance: GUAIFENESIN
  41. MENTHOL [Concomitant]
     Active Substance: MENTHOL

REACTIONS (6)
  - Chronic kidney disease [Not Recovered/Not Resolved]
  - End stage renal disease [Not Recovered/Not Resolved]
  - Acute kidney injury [Unknown]
  - Chronic kidney disease-mineral and bone disorder [Unknown]
  - Renal failure [Unknown]
  - Gastrooesophageal reflux disease [Not Recovered/Not Resolved]

NARRATIVE: CASE EVENT DATE: 20090101
